FAERS Safety Report 9548428 (Version 1)
Quarter: 2013Q3

REPORT INFORMATION
  Report Type: Spontaneous
  Country: US (occurrence: None)
  Receive Date: 20130701
  Receipt Date: 20130701
  Transmission Date: 20140515
  Serious: Yes (Hospitalization)
  Sender: FDA-Public Use
  Company Number: 1359564

PATIENT
  Age: 52 Year
  Sex: Female
  Weight: 73.64 kg

DRUGS (1)
  1. QUELICIN [Suspect]
     Indication: SINUS OPERATION
     Dates: start: 20120718, end: 20120718

REACTIONS (1)
  - Myalgia [None]
